FAERS Safety Report 9882155 (Version 2)
Quarter: 2014Q1

REPORT INFORMATION
  Report Type: Report from Study
  Country: US (occurrence: US)
  Receive Date: 20140207
  Receipt Date: 20140221
  Transmission Date: 20141002
  Serious: Yes (Hospitalization)
  Sender: FDA-Public Use
  Company Number: US-BRISTOL-MYERS SQUIBB COMPANY-20138053

PATIENT
  Age: 75 Year
  Sex: Male
  Weight: 96.14 kg

DRUGS (28)
  1. BYDUREON [Suspect]
     Indication: TYPE 2 DIABETES MELLITUS
     Dosage: SECOND START DATE OF 03-JUL-2013
     Dates: start: 20120222
  2. BLINDED: PLACEBO [Suspect]
     Indication: TYPE 2 DIABETES MELLITUS
     Dosage: SECOND START DATE OF 03-JUL-2013
     Dates: start: 20120222
  3. SPIRONOLACTONE [Concomitant]
     Indication: DIURETIC THERAPY
     Dosage: 28JUN13-03JUL13:25MG?04JUL13-UNK?50MG:29AUG13-UNK
     Dates: start: 20130628
  4. METOPROLOL [Concomitant]
     Dosage: 02JUL2013-03JUL2013:50MG?04JUL2013-UNK:25MG
     Dates: start: 20130702
  5. MIDODRINE HCL [Concomitant]
     Indication: HYPOTENSION
     Dosage: 29JUN13-01JUL13:15MG?7.5MG:02JUL13-UNK
     Dates: start: 20130629, end: 2013
  6. VITAMIN D [Concomitant]
     Indication: MEDICAL DIET
     Dates: start: 20130606
  7. RIFAXIMIN [Concomitant]
     Indication: DIARRHOEA
     Dosage: 1000MG:29AUG2013-UNK
     Dates: start: 20130628
  8. FUROSEMIDE [Concomitant]
     Indication: OEDEMA
     Dosage: 01JUL2013-01JUL13:10MG?04JUL2013-UNK2013:80MG
     Dates: start: 20130701
  9. ALBUMIN [Concomitant]
     Indication: HYPOTENSION
     Dosage: ALBUMIN  5%:75MG IV 28AUG13-30AUG13
     Dates: start: 20130628
  10. D5W [Concomitant]
     Indication: HYPOGLYCAEMIA
     Dates: start: 20130628, end: 20130628
  11. HYDROMORPHONE [Concomitant]
     Indication: PAIN
     Dosage: (0.5MG PRN) Q3HR
     Dates: start: 20130628, end: 20130628
  12. INSULIN LISPRO [Concomitant]
     Indication: HYPERGLYCAEMIA
     Dosage: 1 DF:1-6 UNITS SLIDING SCALE?2TIMES A DAY BEFORE MEALS:28AUG2013-UNK
     Route: 058
     Dates: start: 20130628
  13. INSULIN REGULAR [Concomitant]
     Indication: HYPERGLYCAEMIA
     Dosage: 10MG:28JUN2013-28JUN2013?12 U BEFORE BREAKFAST:28JUN13-UNK?IVPUSH ONETIME
     Dates: start: 20130628
  14. NEOMYCIN [Concomitant]
     Indication: ANTIBIOTIC THERAPY
     Dates: start: 20130628, end: 20130628
  15. KAYEXALATE [Concomitant]
     Indication: HYPERKALAEMIA
     Dosage: 30MG:28JUN2013-28JUN2013?29JUN13-29JUN13:15MG
     Dates: start: 20130628, end: 20130629
  16. SUCRALFATE [Concomitant]
     Indication: GASTROINTESTINAL ULCER
     Dates: start: 20130628, end: 20130706
  17. TORASEMIDE [Concomitant]
     Indication: DIURETIC THERAPY
     Dosage: 20MG:30AUG2013-UNK
     Dates: start: 20130628, end: 20130706
  18. ALBUMIN [Concomitant]
     Indication: HYPOPROTEINAEMIA
     Dates: start: 20130628, end: 20130706
  19. CEFTRIAXONE [Concomitant]
     Indication: MENINGITIS
     Dates: start: 20130628, end: 20130706
  20. NPH INSULIN [Concomitant]
     Indication: HYPOGLYCAEMIA
     Dosage: 28,29JUN13-UK:1DF:12 UNI B4 BREAKFAST?1JUL2013-UNK:10U B4 DINNER?30JUN-30JUN13:16U?5UNI:29-30AG13
     Route: 058
     Dates: start: 20130628
  21. DEXTROSE 5% 1/2 NORMAL SALINE [Concomitant]
     Indication: FLUID REPLACEMENT
     Dates: start: 20130628, end: 20130628
  22. ONDANSETRON [Concomitant]
     Indication: NAUSEA
     Dates: start: 20130629, end: 20130706
  23. COREG [Concomitant]
     Dates: start: 20130630, end: 20130706
  24. OCTREOTIDE [Concomitant]
     Indication: ACROMEGALY
     Dosage: 600MCG 04JUL13-04JUL13;15MG 05JUL13-06JUL13
     Dates: start: 20130704
  25. PANTOPRAZOLE [Concomitant]
     Indication: GASTROINTESTINAL ULCER
     Dosage: 40MG:30AUG13-UNK
     Route: 042
     Dates: start: 20130828, end: 20130830
  26. ZOSYN [Concomitant]
     Indication: CELLULITIS
     Route: 042
     Dates: start: 20130828, end: 20130830
  27. VANCOMYCIN [Concomitant]
     Indication: CELLULITIS
     Route: 042
     Dates: start: 20130828, end: 20130830
  28. FLUCONAZOLE [Concomitant]
     Indication: CELLULITIS
     Route: 048
     Dates: start: 20130828, end: 20130830

REACTIONS (3)
  - Gastrointestinal haemorrhage [Recovered/Resolved with Sequelae]
  - Mental status changes [Recovered/Resolved with Sequelae]
  - Hepatic encephalopathy [Recovered/Resolved with Sequelae]
